FAERS Safety Report 7907596-3 (Version None)
Quarter: 2011Q4

REPORT INFORMATION
  Report Type: 
  Country: None (occurrence: None)
  Receive Date: 20111110
  Receipt Date: 20111103
  Transmission Date: 20120403
  Serious: Yes (Hospitalization)
  Sender: FDA-Public Use
  Company Number: PHHO2011DE04717

PATIENT
  Sex: Female
  Weight: 84 kg

DRUGS (13)
  1. GILENYA [Suspect]
     Indication: MULTIPLE SCLEROSIS
     Dosage: 0.5 MG, QD
     Route: 048
     Dates: start: 20101124
  2. ZOPICLON [Concomitant]
     Indication: SLEEP DISORDER
  3. IBUPROFEN [Concomitant]
     Indication: PAIN
  4. LORAZEPAM [Concomitant]
     Indication: SLEEP DISORDER
  5. ACETYLCYSTEINE [Concomitant]
     Indication: NASOPHARYNGITIS
  6. LITHIUM [Concomitant]
  7. CITALOPRAM HYDROBROMIDE [Concomitant]
  8. THYROXIN [Concomitant]
  9. METOCLOPRAMIDE [Concomitant]
  10. QUILONIUM [Suspect]
     Indication: BIPOLAR DISORDER
  11. MOVIPREP [Concomitant]
     Indication: CONSTIPATION
  12. BETAHISTINE [Concomitant]
     Indication: VERTIGO
  13. ANTIDEPRESSANTS [Concomitant]

REACTIONS (3)
  - LOSS OF CONSCIOUSNESS [None]
  - EPILEPSY [None]
  - DISORIENTATION [None]
